FAERS Safety Report 4325183-3 (Version None)
Quarter: 2004Q1

REPORT INFORMATION
  Report Type: 
  Country: None (occurrence: None)
  Receive Date: 20040323
  Receipt Date: 20040129
  Transmission Date: 20041129
  Serious: No
  Sender: FDA-Public Use
  Company Number: USA040258120

PATIENT
  Age: 56 Year
  Sex: Male
  Weight: 91 kg

DRUGS (10)
  1. CIALIS [Suspect]
     Indication: ERECTILE DYSFUNCTION
     Dosage: 10 MG
     Dates: start: 20040128
  2. SIMVASTATIN [Concomitant]
  3. AMITRIPTYLINE HCL [Concomitant]
  4. RABEPRAZOLE SODIUM [Concomitant]
  5. GABAPENTIN [Concomitant]
  6. METFORMIN HCL [Concomitant]
  7. GEMFIBROZIL [Concomitant]
  8. LISINOPRIL [Concomitant]
  9. NOVOLIN R [Concomitant]
  10. NOVOLIN N [Concomitant]

REACTIONS (1)
  - DRUG INEFFECTIVE [None]
